FAERS Safety Report 18627276 (Version 3)
Quarter: 2020Q4

REPORT INFORMATION
  Report Type: Spontaneous
  Country: JP (occurrence: JP)
  Receive Date: 20201217
  Receipt Date: 20201231
  Transmission Date: 20210114
  Serious: Yes (Death, Hospitalization, Other)
  Sender: FDA-Public Use
  Company Number: JP-TAKEDA-2020TUS057787

PATIENT
  Age: 17 Year
  Sex: Male
  Weight: 30 kg

DRUGS (4)
  1. PREDNISOLONE. [Suspect]
     Active Substance: PREDNISOLONE
     Indication: PRODUCT USED FOR UNKNOWN INDICATION
     Dosage: UNK
     Route: 065
     Dates: start: 202009
  2. ELAPRASE [Suspect]
     Active Substance: IDURSULFASE
     Indication: MUCOPOLYSACCHARIDOSIS II
     Dosage: 20 MILLIGRAM, 1/WEEK
     Route: 041
     Dates: start: 20091016, end: 202010
  3. ELAPRASE [Suspect]
     Active Substance: IDURSULFASE
     Dosage: 20 MILLIGRAM
     Route: 041
     Dates: start: 202010
  4. METHYLPREDNISOLONE. [Suspect]
     Active Substance: METHYLPREDNISOLONE
     Indication: PRODUCT USED FOR UNKNOWN INDICATION
     Dosage: UNK
     Route: 065
     Dates: start: 20201020

REACTIONS (3)
  - Tracheal stenosis [Fatal]
  - Sepsis [Fatal]
  - Dyspnoea [Fatal]

NARRATIVE: CASE EVENT DATE: 201707
